FAERS Safety Report 4366344-7 (Version None)
Quarter: 2004Q2

REPORT INFORMATION
  Report Type: 
  Country: None (occurrence: None)
  Receive Date: 20040527
  Receipt Date: 20031008
  Transmission Date: 20050107
  Serious: No
  Sender: FDA-Public Use
  Company Number: US-GLAXOSMITHKLINE-A0429499A

PATIENT
  Age: 44 Year
  Sex: Female

DRUGS (5)
  1. ALBUTEROL [Suspect]
     Indication: ASTHMA
     Dosage: 2PUFF TWICE PER DAY
     Route: 055
  2. UNIPHYL [Concomitant]
  3. SEREVENT [Concomitant]
  4. FLOVENT [Concomitant]
  5. SINGULAIR [Concomitant]

REACTIONS (2)
  - FEELING JITTERY [None]
  - HEART RATE INCREASED [None]
